FAERS Safety Report 9269577 (Version 3)
Quarter: 2013Q4

REPORT INFORMATION
  Report Type: Report from Study
  Country: CA (occurrence: CA)
  Receive Date: 20130503
  Receipt Date: 20131125
  Transmission Date: 20140711
  Serious: Yes (Life-Threatening)
  Sender: FDA-Public Use
  Company Number: CA-JNJFOC-20130413581

PATIENT
  Age: 55 Year
  Sex: Female
  Weight: 104 kg

DRUGS (3)
  1. REMICADE [Suspect]
     Indication: CROHN^S DISEASE
     Route: 042
     Dates: start: 20131113
  2. REMICADE [Suspect]
     Indication: CROHN^S DISEASE
     Route: 042
     Dates: start: 20121002, end: 20130306
  3. PREDNISONE [Concomitant]
     Indication: CROHN^S DISEASE
     Route: 065

REACTIONS (1)
  - Herpes zoster [Recovered/Resolved]
